FAERS Safety Report 22366227 (Version 2)
Quarter: 2023Q2

REPORT INFORMATION
  Report Type: Spontaneous
  Country: CN (occurrence: CN)
  Receive Date: 20230525
  Receipt Date: 20230601
  Transmission Date: 20230722
  Serious: Yes (Other)
  Sender: FDA-Public Use
  Company Number: CN-PFIZER INC-202300199234

PATIENT
  Age: 45 Year
  Sex: Male

DRUGS (6)
  1. LINEZOLID [Suspect]
     Active Substance: LINEZOLID
     Indication: Pulmonary nocardiosis
     Dosage: UNK
  2. SULFAMETHOXAZOLE [Suspect]
     Active Substance: SULFAMETHOXAZOLE
     Indication: Pneumonia bacterial
     Dosage: 1.44 G, 2X/DAY
     Route: 048
  3. SULFAMETHOXAZOLE [Suspect]
     Active Substance: SULFAMETHOXAZOLE
     Indication: Anti-infective therapy
  4. IMIPENEM AND CILASTATIN [Suspect]
     Active Substance: CILASTATIN SODIUM\IMIPENEM
     Dosage: 0.5 MG, 3X/DAY (ONCE EVERY 8 HOURS)
     Route: 041
  5. IMIPENEM AND CILASTATIN [Suspect]
     Active Substance: CILASTATIN SODIUM\IMIPENEM
     Dosage: 0.5 MG, 3X/DAY (ONCE EVERY 6 HOURS)
     Route: 041
  6. AMIKACIN [Concomitant]
     Active Substance: AMIKACIN
     Dosage: 0.35 MG, 2X/DAY (ONCE EVERY 12 HOURS)
     Route: 041

REACTIONS (4)
  - Bone marrow failure [Unknown]
  - Full blood count decreased [Unknown]
  - Off label use [Unknown]
  - Drug effective for unapproved indication [Unknown]
